FAERS Safety Report 18069116 (Version 1)
Quarter: 2020Q3

REPORT INFORMATION
  Report Type: Report from Study
  Country: US (occurrence: US)
  Receive Date: 20200725
  Receipt Date: 20200725
  Transmission Date: 20201103
  Serious: Yes (Other)
  Sender: FDA-Public Use
  Company Number: NVSC2020US203629

PATIENT
  Sex: Female

DRUGS (1)
  1. MYFORTIC [Suspect]
     Active Substance: MYCOPHENOLATE SODIUM
     Indication: TRANSPLANT
     Dosage: UNK
     Route: 065

REACTIONS (2)
  - Respiratory tract infection [Recovering/Resolving]
  - Illness [Unknown]
